FAERS Safety Report 25091078 (Version 1)
Quarter: 2025Q1

REPORT INFORMATION
  Report Type: Spontaneous
  Country: US (occurrence: US)
  Receive Date: 20250318
  Receipt Date: 20250318
  Transmission Date: 20250408
  Serious: No
  Sender: BAUSCH AND LOMB
  Company Number: US-BAUSCH-BL-2025-003299

PATIENT
  Sex: Female

DRUGS (3)
  1. ALTRENO [Suspect]
     Active Substance: TRETINOIN
     Indication: Skin texture abnormal
     Route: 065
  2. ALTRENO [Suspect]
     Active Substance: TRETINOIN
     Indication: Pigmentation disorder
  3. ALTRENO [Suspect]
     Active Substance: TRETINOIN
     Indication: Product use in unapproved indication

REACTIONS (4)
  - Sensitive skin [Unknown]
  - Application site exfoliation [Unknown]
  - Application site erythema [Unknown]
  - Product use in unapproved indication [Unknown]
